FAERS Safety Report 4336529-4 (Version None)
Quarter: 2004Q2

REPORT INFORMATION
  Report Type: 
  Country: None (occurrence: None)
  Receive Date: 20040407
  Receipt Date: 20040322
  Transmission Date: 20050107
  Serious: Yes (Other)
  Sender: FDA-Public Use
  Company Number: USA040362730

PATIENT
  Age: 61 Year
  Sex: Female

DRUGS (6)
  1. STRATTERA [Suspect]
     Indication: ATTENTION DEFICIT/HYPERACTIVITY DISORDER
     Dosage: 40 MG DAY
  2. DEPAKOTE [Concomitant]
  3. SERZONE [Concomitant]
  4. VIOXX [Concomitant]
  5. LIPITOR [Concomitant]
  6. ASPIRIN [Concomitant]

REACTIONS (7)
  - DECREASED APPETITE [None]
  - DIZZINESS [None]
  - DRUG INEFFECTIVE [None]
  - HEADACHE [None]
  - OTITIS MEDIA [None]
  - VISION BLURRED [None]
  - WEIGHT DECREASED [None]
